FAERS Safety Report 7207894-5 (Version None)
Quarter: 2011Q1

REPORT INFORMATION
  Report Type: 
  Country: None (occurrence: None)
  Receive Date: 20110104
  Receipt Date: 20101221
  Transmission Date: 20110831
  Serious: Yes (Congenital Anomaly, Other)
  Sender: FDA-Public Use
  Company Number: US-JNJFOC-20101208894

PATIENT

DRUGS (6)
  1. ACETAMINOPHEN [Suspect]
     Route: 064
  2. SALICYLAMIDE [Suspect]
     Indication: PRODUCT USED FOR UNKNOWN INDICATION
     Route: 064
  3. VITAMIN TAB [Suspect]
     Indication: PRODUCT USED FOR UNKNOWN INDICATION
     Route: 064
  4. CAFFEINE [Suspect]
     Indication: PRODUCT USED FOR UNKNOWN INDICATION
     Route: 064
  5. ACETAMINOPHEN [Suspect]
     Indication: DRUG EXPOSURE DURING PREGNANCY
     Route: 064
  6. ASPIRIN [Suspect]
     Indication: PRODUCT USED FOR UNKNOWN INDICATION
     Route: 064

REACTIONS (3)
  - HAND DEFORMITY [None]
  - MATERNAL DRUGS AFFECTING FOETUS [None]
  - FOOT DEFORMITY [None]
